FAERS Safety Report 21977855 (Version 2)
Quarter: 2023Q2

REPORT INFORMATION
  Report Type: Report from Study
  Country: US (occurrence: None)
  Receive Date: 20230210
  Receipt Date: 20230403
  Transmission Date: 20230722
  Serious: Yes (Other)
  Sender: FDA-Public Use
  Company Number: US-ROCHE-3279972

PATIENT
  Age: 69 Year
  Sex: Male
  Weight: 98.9 kg

DRUGS (8)
  1. OBINUTUZUMAB [Suspect]
     Active Substance: OBINUTUZUMAB
     Indication: Prophylaxis against graft versus host disease
     Route: 042
     Dates: start: 20221111
  2. TACROLIMUS [Concomitant]
     Active Substance: TACROLIMUS
     Dates: start: 20220721
  3. ACYCLOVIR [Concomitant]
     Active Substance: ACYCLOVIR
     Dates: start: 20220308, end: 20230121
  4. ATORVASTATIN [Concomitant]
     Active Substance: ATORVASTATIN
     Dates: start: 20230120
  5. METOPROLOL [Concomitant]
     Active Substance: METOPROLOL
     Dates: start: 20230121
  6. ASPIRIN [Concomitant]
     Active Substance: ASPIRIN
     Dates: start: 20230122
  7. NITROGLYCERIN [Concomitant]
     Active Substance: NITROGLYCERIN
     Dates: start: 20230121
  8. VANCOMYCIN [Concomitant]
     Active Substance: VANCOMYCIN
     Dates: start: 20230126

REACTIONS (1)
  - Neutrophil count decreased [Recovered/Resolved]

NARRATIVE: CASE EVENT DATE: 20230119
